FAERS Safety Report 12361883 (Version 2)
Quarter: 2016Q3

REPORT INFORMATION
  Report Type: Spontaneous
  Country: US (occurrence: US)
  Receive Date: 20160512
  Receipt Date: 20160809
  Transmission Date: 20161109
  Serious: No
  Sender: FDA-Public Use
  Company Number: US-SA-2016SA069870

PATIENT
  Age: 59 Year
  Sex: Female
  Weight: 56.6 kg

DRUGS (25)
  1. PREMARIN [Concomitant]
     Active Substance: ESTROGENS, CONJUGATED
     Route: 067
  2. RANEXA [Concomitant]
     Active Substance: RANOLAZINE
     Route: 048
  3. OXYCODONE [Concomitant]
     Active Substance: OXYCODONE
     Route: 048
  4. BACTRIM DS [Concomitant]
     Active Substance: SULFAMETHOXAZOLE\TRIMETHOPRIM
     Route: 048
  5. BENTYL [Concomitant]
     Active Substance: DICYCLOMINE HYDROCHLORIDE
     Route: 048
  6. COREG [Concomitant]
     Active Substance: CARVEDILOL
     Route: 048
  7. ADVAIR DISKUS [Concomitant]
     Active Substance: FLUTICASONE PROPIONATE\SALMETEROL XINAFOATE
     Dosage: PUFF INTO THE LUNGS
     Route: 055
  8. IMDUR [Concomitant]
     Active Substance: ISOSORBIDE MONONITRATE
     Route: 048
  9. ZOFRAN [Concomitant]
     Active Substance: ONDANSETRON HYDROCHLORIDE
     Dosage: EVERY 8 (EIGHT) HOURS AS NEEDED
     Route: 048
  10. GLYCOLAX [Concomitant]
     Active Substance: POLYETHYLENE GLYCOL 3350
     Dosage: POWDER
  11. ROXICODONE [Concomitant]
     Active Substance: OXYCODONE HYDROCHLORIDE
     Route: 048
  12. NITROQUICK [Concomitant]
     Active Substance: NITROGLYCERIN
     Dosage: PLACE 0.4 MG UNDER TTIE TONGUE EVERY 5 (FIVE) MINUTES AS NEEDED
     Route: 060
  13. PROVENTIL [Concomitant]
     Active Substance: ALBUTEROL
     Dosage: INHALE 2 PUFFS INTO THE LUNGS EVERY 6 (SIX) HOURS AS NEEDED.
     Route: 055
  14. PLAVIX [Concomitant]
     Active Substance: CLOPIDOGREL BISULFATE
     Route: 048
  15. CRESTOR [Concomitant]
     Active Substance: ROSUVASTATIN CALCIUM
     Indication: BLOOD CHOLESTEROL
     Route: 048
  16. VITAMIN D [Concomitant]
     Active Substance: CHOLECALCIFEROL
     Dosage: DOSE:150000 UNIT(S)
     Route: 048
  17. PRALUENT [Suspect]
     Active Substance: ALIROCUMAB
     Indication: TYPE IIA HYPERLIPIDAEMIA
     Route: 058
     Dates: start: 20151020, end: 20160302
  18. ALIROCUMAB PREFILLED PEN [Concomitant]
     Active Substance: ALIROCUMAB
     Indication: TYPE IIA HYPERLIPIDAEMIA
     Dates: start: 20151020, end: 20160302
  19. DURAGESIC [Concomitant]
     Active Substance: FENTANYL
     Dosage: PLACE 1 PATCH ONTO THE SKIN
     Route: 062
  20. ZETIA [Concomitant]
     Active Substance: EZETIMIBE
     Route: 048
  21. LINZESS [Concomitant]
     Active Substance: LINACLOTIDE
     Route: 048
  22. JUXTAPID [Concomitant]
     Active Substance: LOMITAPIDE MESYLATE
     Route: 048
  23. ALTACE [Concomitant]
     Active Substance: RAMIPRIL
     Route: 048
  24. DEMADEX [Concomitant]
     Active Substance: TORSEMIDE
     Route: 048
  25. PROAIR HFA [Concomitant]
     Active Substance: ALBUTEROL SULFATE
     Indication: WHEEZING
     Dosage: INHALE 2 PUFFS INTO THE LUNGS EVERY 6 (SIX) HOURS AS NEEDED
     Route: 055

REACTIONS (4)
  - Dyspnoea [Recovered/Resolved]
  - Pharyngeal oedema [Recovered/Resolved]
  - Cough [Recovered/Resolved]
  - Hypersensitivity [Unknown]
